FAERS Safety Report 5045750-1 (Version None)
Quarter: 2006Q2

REPORT INFORMATION
  Report Type: 
  Country: None (occurrence: None)
  Receive Date: 20060601
  Receipt Date: 20060418
  Transmission Date: 20061013
  Serious: No
  Sender: FDA-Public Use
  Company Number: 2006-BP-04227BP

PATIENT
  Age: 63 Year
  Sex: Female

DRUGS (5)
  1. SPIRIVA [Suspect]
     Indication: CHRONIC OBSTRUCTIVE PULMONARY DISEASE
     Dosage: 18 MCG (18 MCG,1 IN 1 D),IH
     Dates: start: 20040101
  2. NORVASC [Concomitant]
  3. VALIUM [Concomitant]
  4. MAALOX FAST BLOCKER [Concomitant]
  5. ASPIRIN [Concomitant]

REACTIONS (5)
  - PHOTOPHOBIA [None]
  - PHOTOPSIA [None]
  - PRURITUS GENERALISED [None]
  - SKIN BURNING SENSATION [None]
  - SKIN DISCOLOURATION [None]
